FAERS Safety Report 6599144-8 (Version None)
Quarter: 2010Q1

REPORT INFORMATION
  Report Type: 
  Country: None (occurrence: None)
  Receive Date: 20100224
  Receipt Date: 20091228
  Transmission Date: 20100710
  Serious: No
  Sender: FDA-Public Use
  Company Number: US-BRISTOL-MYERS SQUIBB COMPANY-14915433

PATIENT
  Age: 66 Year
  Sex: Male

DRUGS (2)
  1. METFORMIN HCL [Suspect]
  2. GLIPIZIDE [Suspect]

REACTIONS (1)
  - DIARRHOEA [None]
